FAERS Safety Report 4809410-1 (Version None)
Quarter: 2005Q4

REPORT INFORMATION
  Report Type: 
  Country: None (occurrence: None)
  Receive Date: 20051021
  Receipt Date: 20051012
  Transmission Date: 20060501
  Serious: Yes (Other)
  Sender: FDA-Public Use
  Company Number: 2005126612

PATIENT
  Sex: Male
  Weight: 62.1428 kg

DRUGS (6)
  1. DILANTIN [Suspect]
     Indication: CONVULSION
     Dosage: (DAILY), ORAL
     Route: 048
  2. PROCARDIA XL [Concomitant]
  3. LIPITOR [Concomitant]
  4. ASPIRIN [Concomitant]
  5. INUPROFEN (IBUPROFEN) [Concomitant]
  6. TYLENOL [Concomitant]

REACTIONS (5)
  - BLOOD DISORDER [None]
  - BONE MARROW FAILURE [None]
  - HAEMOGLOBIN DECREASED [None]
  - MYELODYSPLASTIC SYNDROME [None]
  - MYELOFIBROSIS [None]
